FAERS Safety Report 6899133-X (Version None)
Quarter: 2010Q3

REPORT INFORMATION
  Report Type: 
  Country: None (occurrence: None)
  Receive Date: 20100802
  Receipt Date: 20080108
  Transmission Date: 20110219
  Serious: No
  Sender: FDA-Public Use
  Company Number: US-PFIZER INC-2008003082

PATIENT
  Sex: Female
  Weight: 81.8 kg

DRUGS (2)
  1. LYRICA [Suspect]
     Indication: FIBROMYALGIA
  2. ANTIDEPRESSANTS [Concomitant]

REACTIONS (2)
  - CONFUSIONAL STATE [None]
  - VISION BLURRED [None]
